FAERS Safety Report 4782818-9 (Version None)
Quarter: 2005Q3

REPORT INFORMATION
  Report Type: 
  Country: None (occurrence: None)
  Receive Date: 20050927
  Receipt Date: 20050908
  Transmission Date: 20060218
  Serious: Yes (Death, Hospitalization)
  Sender: FDA-Public Use
  Company Number: 200512885GDS

PATIENT
  Age: 88 Year
  Sex: Male
  Weight: 60 kg

DRUGS (4)
  1. ASPIRIN [Suspect]
     Indication: THROMBOSIS PROPHYLAXIS
     Dosage: 100 MG, UNK, ORAL
     Route: 048
     Dates: start: 20050621
  2. BIVALIRUDIN [Suspect]
     Indication: ACUTE CORONARY SYNDROME
     Dosage: SEE IMAGE
     Route: 040
     Dates: start: 20050621
  3. TIROFIBAN [Suspect]
     Indication: ACUTE CORONARY SYNDROME
     Dosage: SEE IMAGE
     Route: 040
     Dates: start: 20050621
  4. CLOPIDOGREL [Suspect]
     Indication: THROMBOSIS PROPHYLAXIS
     Dosage: 75 UG, UNK, ORAL
     Route: 048
     Dates: start: 20050621

REACTIONS (5)
  - HAEMOTHORAX [None]
  - PERICARDIAL EFFUSION [None]
  - PERICARDITIS [None]
  - PLEURAL HAEMORRHAGE [None]
  - POST PROCEDURAL COMPLICATION [None]
